FAERS Safety Report 6399730-4 (Version None)
Quarter: 2009Q4

REPORT INFORMATION
  Report Type: 
  Country: None (occurrence: None)
  Receive Date: 20091014
  Receipt Date: 20091005
  Transmission Date: 20100525
  Serious: Yes (Other)
  Sender: FDA-Public Use
  Company Number: US-ROCHE-660846

PATIENT
  Age: 58 Year
  Sex: Female

DRUGS (3)
  1. BONIVA [Suspect]
     Indication: DRUG USE FOR UNKNOWN INDICATION
     Dosage: TOOK EXPIRED BONIVA MONTHLY TABLET
     Route: 048
     Dates: start: 20091003, end: 20091003
  2. BONIVA [Suspect]
     Route: 048
     Dates: start: 20070101
  3. FOSAMAX [Concomitant]
     Dates: start: 20090914

REACTIONS (6)
  - ABDOMINAL PAIN UPPER [None]
  - CEREBROVASCULAR ACCIDENT [None]
  - CHEST PAIN [None]
  - EXPIRED DRUG ADMINISTERED [None]
  - FOOT FRACTURE [None]
  - VOMITING [None]
